FAERS Safety Report 14552039 (Version 3)
Quarter: 2018Q1

REPORT INFORMATION
  Report Type: Report from Study
  Country: BR (occurrence: BR)
  Receive Date: 20180220
  Receipt Date: 20180310
  Transmission Date: 20180509
  Serious: Yes (Life-Threatening, Other)
  Sender: FDA-Public Use
  Company Number: BR-ROCHE-2075928

PATIENT
  Sex: Female
  Weight: 71 kg

DRUGS (5)
  1. XOLAIR [Suspect]
     Active Substance: OMALIZUMAB
     Route: 058
     Dates: start: 20180202
  2. LOSARTAN. [Concomitant]
     Active Substance: LOSARTAN
     Indication: HYPERTENSION
     Dosage: 2 DF, QD (3 YEARS AGO)
     Route: 048
  3. HYDROCHLOROTHIAZIDE. [Concomitant]
     Active Substance: HYDROCHLOROTHIAZIDE
     Indication: HYPERTENSION
     Dosage: 1 DF, QD (3 YEARS AGO)
     Route: 048
  4. XOLAIR [Suspect]
     Active Substance: OMALIZUMAB
     Indication: CHRONIC SPONTANEOUS URTICARIA
     Route: 058
     Dates: start: 20171204
  5. XOLAIR [Suspect]
     Active Substance: OMALIZUMAB
     Route: 058
     Dates: start: 201801

REACTIONS (15)
  - Chills [Recovering/Resolving]
  - Dyspnoea [Recovering/Resolving]
  - Malaise [Recovering/Resolving]
  - Pain in extremity [Recovering/Resolving]
  - Retching [Recovering/Resolving]
  - Tremor [Recovering/Resolving]
  - Injection site pain [Not Recovered/Not Resolved]
  - Cough [Recovering/Resolving]
  - Headache [Recovering/Resolving]
  - Vomiting [Recovering/Resolving]
  - Feeling abnormal [Recovering/Resolving]
  - Choking [Recovering/Resolving]
  - Abdominal pain [Recovering/Resolving]
  - Nasopharyngitis [Recovering/Resolving]
  - Hypersensitivity [Recovering/Resolving]
